FAERS Safety Report 5427027-5 (Version None)
Quarter: 2007Q3

REPORT INFORMATION
  Report Type: 
  Country: None (occurrence: None)
  Receive Date: 20070731
  Receipt Date: 20070620
  Transmission Date: 20080115
  Serious: No
  Sender: FDA-Public Use
  Company Number: US200705000752

PATIENT
  Age: 63 Year
  Sex: Male

DRUGS (2)
  1. BYETTA [Suspect]
     Indication: DRUG USE FOR UNKNOWN INDICATION
     Dosage: 5 UG, SUBCUTANEOUS 10 UG, SUBCUTANEOUS
     Route: 058
  2. BYETTA [Suspect]
     Dosage: 10UG SQ

REACTIONS (1)
  - BLOOD GLUCOSE INCREASED [None]
